FAERS Safety Report 7606282-7 (Version None)
Quarter: 2011Q3

REPORT INFORMATION
  Report Type: 
  Country: None (occurrence: None)
  Receive Date: 20110713
  Receipt Date: 20110701
  Transmission Date: 20111222
  Serious: Yes (Other)
  Sender: FDA-Public Use
  Company Number: US-BAYER-2011-042909

PATIENT
  Sex: Female
  Weight: 90.703 kg

DRUGS (1)
  1. AVELOX [Suspect]
     Indication: BRONCHITIS
     Dosage: UNK UNK, ONCE

REACTIONS (3)
  - URTICARIA [None]
  - PRURITUS GENERALISED [None]
  - ERYTHEMA [None]
